FAERS Safety Report 13668375 (Version 5)
Quarter: 2017Q3

REPORT INFORMATION
  Report Type: Spontaneous
  Country: US (occurrence: US)
  Receive Date: 20170620
  Receipt Date: 20170830
  Transmission Date: 20171127
  Serious: Yes (Hospitalization, Other)
  Sender: FDA-Public Use
  Company Number: US-PFIZER INC-2017266657

PATIENT
  Age: 76 Year
  Sex: Female

DRUGS (8)
  1. GABAPENTIN. [Suspect]
     Active Substance: GABAPENTIN
     Dosage: 600 MG, DAILY, (TWO 300 MG CAPSULES A DAY)
  2. GABAPENTIN. [Suspect]
     Active Substance: GABAPENTIN
     Indication: NEURALGIA
     Dosage: 300 UNK, 2X/DAY (I CUT DOWN TO A.M + P.M - 300 MG EACH)
  3. GABAPENTIN. [Suspect]
     Active Substance: GABAPENTIN
     Dosage: CUT HERSELF DOWN TO FIVE 300 MG CAPSULES A DAY
  4. GABAPENTIN. [Suspect]
     Active Substance: GABAPENTIN
     Dosage: 300 MG, 2X/DAY
  5. GABAPENTIN. [Suspect]
     Active Substance: GABAPENTIN
     Indication: NEUROPATHY PERIPHERAL
     Dosage: 300 UNK, 5X/DAY
  6. GABAPENTIN. [Suspect]
     Active Substance: GABAPENTIN
     Dosage: 300 MG, 5X/DAY
  7. GABAPENTIN. [Suspect]
     Active Substance: GABAPENTIN
     Dosage: UNK[100 TO 300 5XDAY]
     Dates: start: 2007
  8. FIBERCON [Concomitant]
     Active Substance: CALCIUM POLYCARBOPHIL
     Dosage: UNK

REACTIONS (11)
  - Diarrhoea [Recovering/Resolving]
  - Intentional product use issue [Unknown]
  - Drug dependence [Unknown]
  - Dizziness [Unknown]
  - Fear of falling [Unknown]
  - Product use in unapproved indication [Unknown]
  - Malaise [Unknown]
  - Withdrawal syndrome [Unknown]
  - Fear [Unknown]
  - Gastrointestinal disorder [Unknown]
  - Disease recurrence [Unknown]

NARRATIVE: CASE EVENT DATE: 2007
